FAERS Safety Report 9552993 (Version 1)
Quarter: 2013Q2

REPORT INFORMATION
  Report Type: Spontaneous
  Country: US (occurrence: None)
  Receive Date: 20130606
  Receipt Date: 20130606
  Transmission Date: 20140414
  Serious: Yes (Other)
  Sender: FDA-Public Use
  Company Number: 2013PROUSA02740

PATIENT
  Sex: 0

DRUGS (11)
  1. PROVENGE [Suspect]
     Indication: PROSTATE CANCER METASTATIC
     Route: 042
     Dates: start: 20130321, end: 20130321
  2. CHOLECALCIFEROL [Concomitant]
  3. CLOPIDOGREL BISULFATE [Concomitant]
  4. CRESTOR (ROSUVASTATIN CALCIUM) [Concomitant]
  5. ECOTRIN (ACETYLSALICYLIC ACID) [Concomitant]
  6. FUROSEMIDE [Concomitant]
  7. KEFLEX (CEFALEXIN) [Concomitant]
  8. LISINOPRIL [Concomitant]
  9. METFORMIN HCL [Concomitant]
  10. AMARYL (GLIMEPIRIDE) [Concomitant]
  11. EULEXIN (FLUTAMIDE) [Concomitant]

REACTIONS (1)
  - Herpes zoster [None]
